FAERS Safety Report 24052604 (Version 3)
Quarter: 2024Q3

REPORT INFORMATION
  Report Type: Report from Study
  Country: PL (occurrence: PL)
  Receive Date: 20240705
  Receipt Date: 20240724
  Transmission Date: 20241016
  Serious: Yes (Death)
  Sender: ABBVIE
  Company Number: PL-ABBVIE-5825837

PATIENT
  Age: 72 Year
  Sex: Male

DRUGS (2)
  1. CARBIDOPA\LEVODOPA [Suspect]
     Active Substance: CARBIDOPA\LEVODOPA
     Indication: Parkinson^s disease
     Dosage: 2.6 ML/H ENTERNALLY?FREQUENCY TEXT: 14 H
     Route: 050
     Dates: start: 20240615
  2. CARBIDOPA\LEVODOPA [Suspect]
     Active Substance: CARBIDOPA\LEVODOPA

REACTIONS (1)
  - Malaise [Fatal]

NARRATIVE: CASE EVENT DATE: 20240622
